FAERS Safety Report 5312976-9 (Version None)
Quarter: 2007Q2

REPORT INFORMATION
  Report Type: 
  Country: None (occurrence: None)
  Receive Date: 20070430
  Receipt Date: 20070423
  Transmission Date: 20071010
  Serious: Yes (Other)
  Sender: FDA-Public Use
  Company Number: JP-MERCK-0704USA05708

PATIENT

DRUGS (1)
  1. ZOCOR [Suspect]
     Route: 048
     Dates: start: 20060522

REACTIONS (1)
  - GUILLAIN-BARRE SYNDROME [None]
